FAERS Safety Report 5676555-6 (Version None)
Quarter: 2008Q1

REPORT INFORMATION
  Report Type: 
  Country: None (occurrence: None)
  Receive Date: 20080321
  Receipt Date: 20080321
  Transmission Date: 20080703
  Serious: No
  Sender: FDA-Public Use
  Company Number: None

PATIENT
  Sex: Male
  Weight: 117.9352 kg

DRUGS (2)
  1. OPANA ER [Suspect]
     Indication: HEADACHE
     Dosage: 40MG 3 Q 12 H PO
     Route: 048
     Dates: start: 20080310, end: 20080312
  2. OPANA ER 10 MG TAB [Suspect]
     Indication: HEADACHE
     Dosage: 10 MG 2 Q 4 H PO
     Route: 048
     Dates: start: 20080310, end: 20080312

REACTIONS (5)
  - BREATH ODOUR [None]
  - DYSGEUSIA [None]
  - HEADACHE [None]
  - NAUSEA [None]
  - WITHDRAWAL SYNDROME [None]
